FAERS Safety Report 8433822-0 (Version None)
Quarter: 2012Q2

REPORT INFORMATION
  Report Type: 
  Country: None (occurrence: None)
  Receive Date: 20120323
  Receipt Date: 20110902
  Transmission Date: 20120825
  Serious: Yes (Other)
  Sender: FDA-Public Use
  Company Number: 163-21880-11071980

PATIENT
  Age: 89 Year
  Sex: Female

DRUGS (3)
  1. REVLIMID [Suspect]
     Indication: MYELODYSPLASTIC SYNDROME
     Dosage: 5 MG, 1 IN 1 D, PO   5 MG, QOD, PO    5 MG, EVERY 3 DAYS, PO
     Route: 048
     Dates: start: 20110727
  2. REVLIMID [Suspect]
     Indication: MYELODYSPLASTIC SYNDROME
     Dosage: 5 MG, 1 IN 1 D, PO   5 MG, QOD, PO    5 MG, EVERY 3 DAYS, PO
     Route: 048
     Dates: start: 20110716
  3. REVLIMID [Suspect]
     Indication: MYELODYSPLASTIC SYNDROME
     Dosage: 5 MG, 1 IN 1 D, PO   5 MG, QOD, PO    5 MG, EVERY 3 DAYS, PO
     Route: 048
     Dates: start: 20110602, end: 20110706

REACTIONS (1)
  - NEUTROPHIL COUNT DECREASED [None]
